FAERS Safety Report 10220205 (Version 3)
Quarter: 2014Q3

REPORT INFORMATION
  Report Type: Spontaneous
  Country: US (occurrence: US)
  Receive Date: 20140606
  Receipt Date: 20140722
  Transmission Date: 20150326
  Serious: Yes (Other)
  Sender: FDA-Public Use
  Company Number: US-009507513-1406USA001534

PATIENT
  Age: 22 Year
  Sex: Female
  Weight: 87.75 kg

DRUGS (1)
  1. NEXPLANON [Suspect]
     Active Substance: ETONOGESTREL
     Indication: CONTRACEPTION
     Dosage: 68 MG IMPLANT, IN HER ARM, UNK
     Route: 059
     Dates: start: 20131111, end: 20140602

REACTIONS (3)
  - Metrorrhagia [Recovered/Resolved]
  - Device breakage [Recovered/Resolved]
  - Discomfort [Recovered/Resolved]

NARRATIVE: CASE EVENT DATE: 201405
